FAERS Safety Report 8134670-1 (Version None)
Quarter: 2012Q1

REPORT INFORMATION
  Report Type: 
  Country: None (occurrence: None)
  Receive Date: 20120214
  Receipt Date: 20120203
  Transmission Date: 20120608
  Serious: Yes (Life-Threatening, Other)
  Sender: FDA-Public Use
  Company Number: BR-JNJFOC-20120204586

PATIENT
  Sex: Male

DRUGS (1)
  1. REMICADE [Suspect]
     Indication: ANKYLOSING SPONDYLITIS
     Route: 042

REACTIONS (6)
  - OSTEOARTHRITIS [None]
  - INSOMNIA [None]
  - MALAISE [None]
  - PAIN [None]
  - DECREASED APPETITE [None]
  - RESPIRATORY ARREST [None]
